FAERS Safety Report 6589962-4 (Version None)
Quarter: 2010Q1

REPORT INFORMATION
  Report Type: 
  Country: None (occurrence: None)
  Receive Date: 20100219
  Receipt Date: 20100205
  Transmission Date: 20100710
  Serious: Yes (Hospitalization)
  Sender: FDA-Public Use
  Company Number: PHHY2010KR06907

PATIENT

DRUGS (1)
  1. ACLASTA [Suspect]

REACTIONS (5)
  - GASTRITIS [None]
  - HEADACHE [None]
  - HEPATIC ENZYME INCREASED [None]
  - NAUSEA [None]
  - OESOPHAGITIS [None]
